FAERS Safety Report 16728388 (Version 1)
Quarter: 2019Q3

REPORT INFORMATION
  Report Type: Spontaneous
  Country: BE (occurrence: JP)
  Receive Date: 20190822
  Receipt Date: 20190822
  Transmission Date: 20191005
  Serious: Yes (Hospitalization)
  Sender: FDA-Public Use
  Company Number: BE-JNJFOC-20190820868

PATIENT
  Age: 54 Year
  Sex: Female

DRUGS (3)
  1. RIBOFLAVIN [Suspect]
     Active Substance: RIBOFLAVIN
     Indication: RHINITIS ALLERGIC
     Dosage: DAILY DOSE: 10MILLIGRAM
     Route: 048
     Dates: start: 19990305, end: 19990305
  2. CETIRIZINE HYDROCHLORIDE. [Suspect]
     Active Substance: CETIRIZINE HYDROCHLORIDE
     Indication: RHINITIS ALLERGIC
     Route: 048
     Dates: start: 19990223, end: 19990305
  3. PYRIDOXAL PHOSPHATE [Suspect]
     Active Substance: PYRIDOXAL PHOSPHATE
     Indication: RHINITIS ALLERGIC
     Dosage: DAILY DOSE: 20MILLIGRAM
     Route: 048
     Dates: start: 19990305, end: 19990305

REACTIONS (5)
  - Shock [Unknown]
  - Malaise [Unknown]
  - Pruritus [Unknown]
  - Nausea [Unknown]
  - Rash [Unknown]

NARRATIVE: CASE EVENT DATE: 1999
